FAERS Safety Report 18001385 (Version 2)
Quarter: 2021Q1

REPORT INFORMATION
  Report Type: Spontaneous
  Country: CA (occurrence: CA)
  Receive Date: 20200709
  Receipt Date: 20210222
  Transmission Date: 20210419
  Serious: Yes (Life-Threatening, Other)
  Sender: FDA-Public Use
  Company Number: CA-TEVA-2020-CA-1797291

PATIENT
  Age: 5 Year
  Sex: Male
  Weight: 20 kg

DRUGS (41)
  1. DIMENHYDRINATE. [Concomitant]
     Active Substance: DIMENHYDRINATE
  2. HYDROXYZINE [Concomitant]
     Active Substance: HYDROXYZINE HYDROCHLORIDE
  3. MEROPENEM. [Concomitant]
     Active Substance: MEROPENEM
  4. POTASSIUM [Concomitant]
     Active Substance: POTASSIUM
  5. RANITIDINE. [Concomitant]
     Active Substance: RANITIDINE
  6. HYDROCORTISONE. [Suspect]
     Active Substance: HYDROCORTISONE
     Route: 037
  7. DEXAMETHASONE. [Concomitant]
     Active Substance: DEXAMETHASONE
  8. DIPHENHYDRAMINE. [Concomitant]
     Active Substance: DIPHENHYDRAMINE
  9. MYCAMINE [Concomitant]
     Active Substance: MICAFUNGIN SODIUM
  10. TOBRAMYCIN. [Concomitant]
     Active Substance: TOBRAMYCIN
  11. CYTARABINE INJECTION [Suspect]
     Active Substance: CYTARABINE
     Route: 042
  12. CEFTAZIDIME. [Concomitant]
     Active Substance: CEFTAZIDIME
  13. PIPERACILLIN AND TAZOBACTAM [Concomitant]
     Active Substance: PIPERACILLIN SODIUM\TAZOBACTAM SODIUM
  14. SULFAMETHOXAZOLE AND TRIMETHOPRIM [Concomitant]
     Active Substance: SULFAMETHOXAZOLE\TRIMETHOPRIM
  15. RITUXAN [Suspect]
     Active Substance: RITUXIMAB
     Indication: BURKITT^S LYMPHOMA
     Route: 042
  16. ACETAMINOPHEN. [Concomitant]
     Active Substance: ACETAMINOPHEN
  17. EPINEPHRINE. [Concomitant]
     Active Substance: EPINEPHRINE
  18. FILGRASTIM [Concomitant]
     Active Substance: FILGRASTIM
  19. FLUCONAZOLE. [Concomitant]
     Active Substance: FLUCONAZOLE
  20. METOCLOPRAMIDE. [Concomitant]
     Active Substance: METOCLOPRAMIDE
  21. METRONIDAZOLE. [Concomitant]
     Active Substance: METRONIDAZOLE
  22. MOXIFLOXACIN. [Concomitant]
     Active Substance: MOXIFLOXACIN
  23. VANCOMYCIN [Concomitant]
     Active Substance: VANCOMYCIN
  24. ETOPOSIDE. [Suspect]
     Active Substance: ETOPOSIDE
     Indication: BURKITT^S LYMPHOMA
     Route: 042
  25. ETOPOSIDE. [Suspect]
     Active Substance: ETOPOSIDE
     Route: 042
  26. CYTARABINE INJECTION [Suspect]
     Active Substance: CYTARABINE
     Indication: BURKITT^S LYMPHOMA
     Route: 042
  27. CIPROFLOXACIN. [Concomitant]
     Active Substance: CIPROFLOXACIN
  28. HYDROCORTISONE. [Suspect]
     Active Substance: HYDROCORTISONE
     Indication: BURKITT^S LYMPHOMA
     Route: 037
  29. RITUXAN [Suspect]
     Active Substance: RITUXIMAB
     Route: 042
  30. CETIRIZINE [Concomitant]
     Active Substance: CETIRIZINE HYDROCHLORIDE
  31. HEPARIN CALCIUM [Concomitant]
     Active Substance: HEPARIN CALCIUM
  32. HYDROMORPHONE [Concomitant]
     Active Substance: HYDROMORPHONE
  33. KETAMINE (UNKNOWN) [Concomitant]
     Active Substance: KETAMINE
  34. ONDANSETRON [Concomitant]
     Active Substance: ONDANSETRON
  35. PENTAMIDINE ISETHIONATE INJ 300MG/VIAL BP [Concomitant]
  36. POLYETHYLENE GLYCOL [Concomitant]
     Active Substance: POLYETHYLENE GLYCOLS
  37. METHOTREXATE. [Suspect]
     Active Substance: METHOTREXATE
     Route: 037
  38. CLONIDINE. [Concomitant]
     Active Substance: CLONIDINE
  39. FOLIC ACID. [Concomitant]
     Active Substance: FOLIC ACID
  40. FUROSEMIDE. [Concomitant]
     Active Substance: FUROSEMIDE
  41. METHOTREXATE. [Suspect]
     Active Substance: METHOTREXATE
     Route: 037

REACTIONS (3)
  - Aplastic anaemia [Unknown]
  - Transfusion [Unknown]
  - Febrile bone marrow aplasia [Unknown]
